FAERS Safety Report 6207559-2 (Version None)
Quarter: 2009Q2

REPORT INFORMATION
  Report Type: 
  Country: None (occurrence: None)
  Receive Date: 20090528
  Receipt Date: 20090521
  Transmission Date: 20091009
  Serious: Yes (Other)
  Sender: FDA-Public Use
  Company Number: CO-PFIZER INC-2009218039

PATIENT
  Age: 78 Year

DRUGS (4)
  1. LIPITOR [Suspect]
     Indication: BLOOD CHOLESTEROL INCREASED
     Route: 048
  2. GLUCOPHAGE [Concomitant]
     Dosage: UNK
  3. DIAMICRON [Concomitant]
     Dosage: UNK
  4. RANITIDINE [Concomitant]
     Dosage: UNK

REACTIONS (1)
  - INFARCTION [None]
